FAERS Safety Report 7900802-0 (Version None)
Quarter: 2011Q4

REPORT INFORMATION
  Report Type: 
  Country: None (occurrence: None)
  Receive Date: 20111108
  Receipt Date: 20111103
  Transmission Date: 20120403
  Serious: Yes (Death, Hospitalization)
  Sender: FDA-Public Use
  Company Number: US-ASTELLAS-2011US006891

PATIENT
  Sex: Female

DRUGS (9)
  1. AVASTIN [Suspect]
     Indication: NON-SMALL CELL LUNG CANCER
     Dosage: 2 DF, UNKNOWN/D
     Route: 065
     Dates: start: 20110601, end: 20110701
  2. CARBOPLATIN [Concomitant]
     Indication: PRODUCT USED FOR UNKNOWN INDICATION
     Dosage: UNK
     Route: 065
  3. TARCEVA [Suspect]
     Indication: NON-SMALL CELL LUNG CANCER
     Dosage: 150 MG, UID/QD
     Route: 048
     Dates: start: 20110112
  4. TARCEVA [Suspect]
     Dosage: 150 MG, UID/QD
     Route: 048
     Dates: start: 20110302, end: 20110411
  5. PEMETREXED [Concomitant]
     Indication: PRODUCT USED FOR UNKNOWN INDICATION
     Dosage: UNK
     Route: 065
     Dates: start: 20110601
  6. TARCEVA [Suspect]
     Dosage: 100 MG, UID/QD
     Route: 048
     Dates: start: 20110204
  7. TAXOL [Concomitant]
     Indication: PRODUCT USED FOR UNKNOWN INDICATION
     Dosage: UNK
     Route: 065
  8. CHEMOTHERAPEUTICS NOS [Concomitant]
     Indication: PRODUCT USED FOR UNKNOWN INDICATION
     Dosage: UNK
     Route: 065
  9. TARCEVA [Suspect]
     Dosage: 75 MG, UID/QD
     Route: 048
     Dates: start: 20110126

REACTIONS (3)
  - LEUKOENCEPHALOPATHY [None]
  - DISEASE PROGRESSION [None]
  - FALL [None]
